FAERS Safety Report 5640402-9 (Version None)
Quarter: 2008Q1

REPORT INFORMATION
  Report Type: 
  Country: None (occurrence: None)
  Receive Date: 20080227
  Receipt Date: 20080123
  Transmission Date: 20080703
  Serious: No
  Sender: FDA-Public Use
  Company Number: US-BAXTER-2008BH000342

PATIENT
  Age: 57 Year
  Sex: Female
  Weight: 142 kg

DRUGS (20)
  1. HEPARIN SODIUM [Suspect]
     Indication: HAEMODIALYSIS
     Route: 040
     Dates: start: 20080109, end: 20080101
  2. HEPARIN SODIUM [Suspect]
     Route: 040
     Dates: start: 20080109, end: 20080101
  3. HEPARIN SODIUM [Suspect]
     Route: 042
     Dates: start: 20080109, end: 20080101
  4. SENSIPAR [Concomitant]
     Indication: HYPERPARATHYROIDISM
     Route: 048
     Dates: start: 20071002
  5. CARNITOR [Concomitant]
     Indication: MUSCLE SPASMS
     Route: 048
     Dates: start: 20070818
  6. ^IMOCOR^ [Concomitant]
     Indication: BLOOD CHOLESTEROL DECREASED
     Route: 048
     Dates: start: 20070813
  7. ASPIRIN [Concomitant]
     Indication: ANTICOAGULANT THERAPY
     Route: 048
     Dates: start: 20070813
  8. QUALAQUIN [Concomitant]
     Indication: MUSCLE SPASMS
     Route: 048
     Dates: start: 20070813
  9. COUMADIN [Concomitant]
     Indication: ANTICOAGULANT THERAPY
     Route: 048
     Dates: start: 20071105
  10. COUMADIN [Concomitant]
     Route: 048
     Dates: start: 20070404
  11. RENAGEL [Concomitant]
     Route: 048
     Dates: start: 20060331
  12. PROCARDIA [Concomitant]
     Indication: HYPERTENSION
     Route: 048
     Dates: start: 20060113
  13. ^ZZDIATX^ [Concomitant]
     Indication: VITAMIN SUPPLEMENTATION
     Route: 048
     Dates: start: 20050314
  14. ABSORBABLE GELATIN SPONGE [Concomitant]
     Indication: ANALGESIC THERAPY
     Dosage: DOSE UNIT:UNKNOWN
     Route: 048
     Dates: start: 20050205
  15. ZYLOPRIM [Concomitant]
     Indication: GOUT
     Route: 048
     Dates: start: 20041019
  16. HYDRALAZINE HCL [Concomitant]
     Indication: HYPERTENSION
     Route: 048
     Dates: start: 20040914
  17. HYDRALAZINE HCL [Concomitant]
     Route: 048
     Dates: start: 20031024
  18. EPO [Concomitant]
     Indication: IRON DEFICIENCY
     Route: 042
     Dates: start: 20080109
  19. VENOFER [Concomitant]
     Indication: ANAEMIA
     Route: 042
     Dates: start: 20070210
  20. ZEMPLAR [Concomitant]
     Indication: HYPERPHOSPHATAEMIA
     Route: 042
     Dates: start: 20071226

REACTIONS (2)
  - DYSPNOEA [None]
  - HYPOAESTHESIA [None]
